FAERS Safety Report 17976066 (Version 2)
Quarter: 2020Q3

REPORT INFORMATION
  Report Type: Spontaneous
  Country: US (occurrence: US)
  Receive Date: 20200702
  Receipt Date: 20200709
  Transmission Date: 20201103
  Serious: Yes (Other)
  Sender: FDA-Public Use
  Company Number: US-PFIZER INC-2020252504

PATIENT
  Sex: Female

DRUGS (2)
  1. EUCRISA [Suspect]
     Active Substance: CRISABOROLE
     Indication: ECZEMA
     Dosage: UNK
  2. FLUOCINOLONE [Concomitant]
     Active Substance: FLUOCINOLONE

REACTIONS (10)
  - Gastrointestinal bacterial overgrowth [Unknown]
  - Stool analysis abnormal [Unknown]
  - Irritable bowel syndrome [Unknown]
  - Gluten sensitivity [Unknown]
  - Gastrointestinal candidiasis [Unknown]
  - Skin irritation [Unknown]
  - Crohn^s disease [Unknown]
  - Gastrointestinal inflammation [Unknown]
  - Pruritus [Unknown]
  - Coeliac disease [Unknown]
